FAERS Safety Report 7588733 (Version 2)
Quarter: 2018Q1

REPORT INFORMATION
  Report Type: Spontaneous
  Country: US (occurrence: US)
  Receive Date: 20100916
  Receipt Date: 20180209
  Transmission Date: 20180509
  Serious: Yes (Hospitalization)
  Sender: FDA-Public Use
  Company Number: US-TEVA-247619USA

PATIENT
  Age: 69 Year
  Sex: Female

DRUGS (1)
  1. ALENDRONAT SODIUM, TABLETS, 5MG, 10MG, 40MG, 35MG, 70MG [Suspect]
     Active Substance: ALENDRONATE SODIUM
     Route: 065

REACTIONS (1)
  - Femur fracture [Unknown]
